FAERS Safety Report 22947951 (Version 3)
Quarter: 2023Q4

REPORT INFORMATION
  Report Type: Spontaneous
  Country: US (occurrence: US)
  Receive Date: 20230915
  Receipt Date: 20231108
  Transmission Date: 20240110
  Serious: Yes (Disabling, Other)
  Sender: FDA-Public Use
  Company Number: US-REGENERON PHARMACEUTICALS, INC.-2023-112349

PATIENT
  Sex: Male

DRUGS (2)
  1. EYLEA [Suspect]
     Active Substance: AFLIBERCEPT
     Indication: Neovascular age-related macular degeneration
     Dosage: 2 MG,EVERY 3 MONTHS INTO RIGHT EYE (FORMULATION:PFS GERRESHEIMER)
     Dates: end: 20230831
  2. EYLEA [Suspect]
     Active Substance: AFLIBERCEPT
     Indication: Choroidal neovascularisation

REACTIONS (7)
  - Retinal vasculitis [Unknown]
  - Blindness unilateral [Recovering/Resolving]
  - Retinal haemorrhage [Unknown]
  - Optic atrophy [Unknown]
  - Arteriosclerotic retinopathy [Unknown]
  - Endophthalmitis [Unknown]
  - Visual acuity reduced [Unknown]

NARRATIVE: CASE EVENT DATE: 20230908
